FAERS Safety Report 4550201-7 (Version None)
Quarter: 2005Q1

REPORT INFORMATION
  Report Type: 
  Country: None (occurrence: None)
  Receive Date: 20050112
  Receipt Date: 20050105
  Transmission Date: 20050727
  Serious: Yes (Other)
  Sender: FDA-Public Use
  Company Number: US-GLAXOSMITHKLINE-A0539439A

PATIENT
  Sex: Female

DRUGS (1)
  1. SOMINEX MAXIMUM STRENGTH CAPLETS [Suspect]
     Dosage: 800MG CUMULATIVE DOSE
     Route: 048
     Dates: start: 20050105

REACTIONS (2)
  - OVERDOSE [None]
  - SUICIDE ATTEMPT [None]
